FAERS Safety Report 5275394-8 (Version None)
Quarter: 2007Q1

REPORT INFORMATION
  Report Type: 
  Country: None (occurrence: None)
  Receive Date: 20070326
  Receipt Date: 20070314
  Transmission Date: 20070707
  Serious: Yes (Other)
  Sender: FDA-Public Use
  Company Number: PHBS2007ES04528

PATIENT
  Age: 14 Year
  Sex: Female

DRUGS (1)
  1. TRILEPTAL [Suspect]
     Indication: IMPULSIVE BEHAVIOUR
     Dosage: 300 MG DAILY
     Route: 048
     Dates: start: 20070305, end: 20070301

REACTIONS (2)
  - MYOPIA [None]
  - VISUAL DISTURBANCE [None]
